FAERS Safety Report 24601933 (Version 1)
Quarter: 2024Q4

REPORT INFORMATION
  Report Type: Report from Study
  Country: JP (occurrence: JP)
  Receive Date: 20241111
  Receipt Date: 20241111
  Transmission Date: 20250115
  Serious: Yes (Other)
  Sender: ALEXION PHARMACEUTICALS
  Company Number: JP-ASTRAZENECA-240079166_013120_P_1

PATIENT
  Age: 72 Year
  Weight: 36 kg

DRUGS (72)
  1. DURVALUMAB [Suspect]
     Active Substance: DURVALUMAB
     Indication: Bile duct cancer
     Dosage: 1500 MILLIGRAM, Q3W
  2. DURVALUMAB [Suspect]
     Active Substance: DURVALUMAB
     Dosage: 1500 MILLIGRAM, Q3W
  3. DURVALUMAB [Suspect]
     Active Substance: DURVALUMAB
     Dosage: 1500 MILLIGRAM, Q3W
  4. DURVALUMAB [Suspect]
     Active Substance: DURVALUMAB
     Dosage: 1500 MILLIGRAM, Q3W
  5. GEMCITABINE [Concomitant]
     Active Substance: GEMCITABINE
     Indication: Bile duct cancer
     Dosage: 660 MILLIGRAM/SQ. METER, UNK
     Route: 065
  6. GEMCITABINE [Concomitant]
     Active Substance: GEMCITABINE
     Indication: Bile duct cancer
     Dosage: 660 MILLIGRAM/SQ. METER, UNK
  7. GEMCITABINE [Concomitant]
     Active Substance: GEMCITABINE
     Dosage: 660 MILLIGRAM/SQ. METER, UNK
  8. GEMCITABINE [Concomitant]
     Active Substance: GEMCITABINE
     Dosage: 660 MILLIGRAM/SQ. METER, UNK
     Route: 065
  9. GEMCITABINE [Concomitant]
     Active Substance: GEMCITABINE
     Dosage: 400 MILLIGRAM/SQ. METER, UNK
  10. GEMCITABINE [Concomitant]
     Active Substance: GEMCITABINE
     Dosage: 400 MILLIGRAM/SQ. METER, UNK
     Route: 065
  11. GEMCITABINE [Concomitant]
     Active Substance: GEMCITABINE
     Dosage: 400 MILLIGRAM/SQ. METER, UNK
  12. GEMCITABINE [Concomitant]
     Active Substance: GEMCITABINE
     Dosage: 400 MILLIGRAM/SQ. METER, UNK
     Route: 065
  13. GEMCITABINE [Concomitant]
     Active Substance: GEMCITABINE
     Dosage: 660 MILLIGRAM/SQ. METER, UNK
  14. GEMCITABINE [Concomitant]
     Active Substance: GEMCITABINE
     Dosage: 660 MILLIGRAM/SQ. METER, UNK
     Route: 065
  15. GEMCITABINE [Concomitant]
     Active Substance: GEMCITABINE
     Dosage: 660 MILLIGRAM/SQ. METER, UNK
  16. GEMCITABINE [Concomitant]
     Active Substance: GEMCITABINE
     Dosage: 660 MILLIGRAM/SQ. METER, UNK
     Route: 065
  17. GEMCITABINE [Concomitant]
     Active Substance: GEMCITABINE
     Dosage: 780 MILLIGRAM/SQ. METER, UNK
  18. GEMCITABINE [Concomitant]
     Active Substance: GEMCITABINE
     Dosage: 780 MILLIGRAM/SQ. METER, UNK
  19. GEMCITABINE [Concomitant]
     Active Substance: GEMCITABINE
     Dosage: 780 MILLIGRAM/SQ. METER, UNK
     Route: 065
  20. GEMCITABINE [Concomitant]
     Active Substance: GEMCITABINE
     Dosage: 780 MILLIGRAM/SQ. METER, UNK
     Route: 065
  21. GEMCITABINE [Concomitant]
     Active Substance: GEMCITABINE
     Dosage: 790 MILLIGRAM/SQ. METER, UNK
  22. GEMCITABINE [Concomitant]
     Active Substance: GEMCITABINE
     Dosage: 790 MILLIGRAM/SQ. METER, UNK
     Route: 065
  23. GEMCITABINE [Concomitant]
     Active Substance: GEMCITABINE
     Dosage: 790 MILLIGRAM/SQ. METER, UNK
     Route: 065
  24. GEMCITABINE [Concomitant]
     Active Substance: GEMCITABINE
     Dosage: 790 MILLIGRAM/SQ. METER, UNK
  25. GEMCITABINE [Concomitant]
     Active Substance: GEMCITABINE
     Dosage: 780 MILLIGRAM/SQ. METER, UNK
     Route: 065
  26. GEMCITABINE [Concomitant]
     Active Substance: GEMCITABINE
     Dosage: 780 MILLIGRAM/SQ. METER, UNK
     Route: 065
  27. GEMCITABINE [Concomitant]
     Active Substance: GEMCITABINE
     Dosage: 780 MILLIGRAM/SQ. METER, UNK
  28. GEMCITABINE [Concomitant]
     Active Substance: GEMCITABINE
     Dosage: 780 MILLIGRAM/SQ. METER, UNK
  29. GEMCITABINE [Concomitant]
     Active Substance: GEMCITABINE
     Dosage: 760 MILLIGRAM/SQ. METER, UNK
  30. GEMCITABINE [Concomitant]
     Active Substance: GEMCITABINE
     Dosage: 760 MILLIGRAM/SQ. METER, UNK
     Route: 065
  31. GEMCITABINE [Concomitant]
     Active Substance: GEMCITABINE
     Dosage: 760 MILLIGRAM/SQ. METER, UNK
  32. GEMCITABINE [Concomitant]
     Active Substance: GEMCITABINE
     Dosage: 760 MILLIGRAM/SQ. METER, UNK
     Route: 065
  33. GEMCITABINE [Concomitant]
     Active Substance: GEMCITABINE
     Dosage: 770 MILLIGRAM/SQ. METER, UNK
  34. GEMCITABINE [Concomitant]
     Active Substance: GEMCITABINE
     Dosage: 770 MILLIGRAM/SQ. METER, UNK
  35. GEMCITABINE [Concomitant]
     Active Substance: GEMCITABINE
     Dosage: 770 MILLIGRAM/SQ. METER, UNK
     Route: 065
  36. GEMCITABINE [Concomitant]
     Active Substance: GEMCITABINE
     Dosage: 770 MILLIGRAM/SQ. METER, UNK
     Route: 065
  37. GEMCITABINE [Concomitant]
     Active Substance: GEMCITABINE
     Dosage: 570 MILLIGRAM/SQ. METER, UNK
  38. GEMCITABINE [Concomitant]
     Active Substance: GEMCITABINE
     Dosage: 570 MILLIGRAM/SQ. METER, UNK
     Route: 065
  39. GEMCITABINE [Concomitant]
     Active Substance: GEMCITABINE
     Dosage: 570 MILLIGRAM/SQ. METER, UNK
     Route: 065
  40. GEMCITABINE [Concomitant]
     Active Substance: GEMCITABINE
     Dosage: 570 MILLIGRAM/SQ. METER, UNK
  41. GEMCITABINE [Concomitant]
     Active Substance: GEMCITABINE
     Dosage: 1000 MILLIGRAM/SQ. METER, UNK
  42. GEMCITABINE [Concomitant]
     Active Substance: GEMCITABINE
     Dosage: 1000 MILLIGRAM/SQ. METER, UNK
     Route: 065
  43. GEMCITABINE [Concomitant]
     Active Substance: GEMCITABINE
     Dosage: 1000 MILLIGRAM/SQ. METER, UNK
     Route: 065
  44. GEMCITABINE [Concomitant]
     Active Substance: GEMCITABINE
     Dosage: 1000 MILLIGRAM/SQ. METER, UNK
  45. GEMCITABINE [Concomitant]
     Active Substance: GEMCITABINE
     Dosage: 770 MILLIGRAM/SQ. METER, UNK
  46. GEMCITABINE [Concomitant]
     Active Substance: GEMCITABINE
     Dosage: 770 MILLIGRAM/SQ. METER, UNK
     Route: 065
  47. GEMCITABINE [Concomitant]
     Active Substance: GEMCITABINE
     Dosage: 770 MILLIGRAM/SQ. METER, UNK
     Route: 065
  48. GEMCITABINE [Concomitant]
     Active Substance: GEMCITABINE
     Dosage: 770 MILLIGRAM/SQ. METER, UNK
  49. GEMCITABINE [Concomitant]
     Active Substance: GEMCITABINE
     Dosage: 570 MILLIGRAM/SQ. METER, UNK
     Route: 065
  50. GEMCITABINE [Concomitant]
     Active Substance: GEMCITABINE
     Dosage: 570 MILLIGRAM/SQ. METER, UNK
  51. GEMCITABINE [Concomitant]
     Active Substance: GEMCITABINE
     Dosage: 570 MILLIGRAM/SQ. METER, UNK
     Route: 065
  52. GEMCITABINE [Concomitant]
     Active Substance: GEMCITABINE
     Dosage: 570 MILLIGRAM/SQ. METER, UNK
  53. CISPLATIN [Concomitant]
     Active Substance: CISPLATIN
     Indication: Bile duct cancer
     Dosage: 17 MILLIGRAM/SQ. METER, UNK
     Route: 065
  54. CISPLATIN [Concomitant]
     Active Substance: CISPLATIN
     Indication: Bile duct cancer
     Dosage: 17 MILLIGRAM/SQ. METER, UNK
  55. CISPLATIN [Concomitant]
     Active Substance: CISPLATIN
     Dosage: 17 MILLIGRAM/SQ. METER, UNK
     Route: 065
  56. CISPLATIN [Concomitant]
     Active Substance: CISPLATIN
     Dosage: 17 MILLIGRAM/SQ. METER, UNK
  57. CISPLATIN [Concomitant]
     Active Substance: CISPLATIN
     Dosage: 10 MILLIGRAM/SQ. METER, UNK
  58. CISPLATIN [Concomitant]
     Active Substance: CISPLATIN
     Dosage: 10 MILLIGRAM/SQ. METER, UNK
  59. CISPLATIN [Concomitant]
     Active Substance: CISPLATIN
     Dosage: 10 MILLIGRAM/SQ. METER, UNK
     Route: 065
  60. CISPLATIN [Concomitant]
     Active Substance: CISPLATIN
     Dosage: 10 MILLIGRAM/SQ. METER, UNK
     Route: 065
  61. CISPLATIN [Concomitant]
     Active Substance: CISPLATIN
     Dosage: 17 MILLIGRAM/SQ. METER, UNK
  62. CISPLATIN [Concomitant]
     Active Substance: CISPLATIN
     Dosage: 17 MILLIGRAM/SQ. METER, UNK
     Route: 065
  63. CISPLATIN [Concomitant]
     Active Substance: CISPLATIN
     Dosage: 17 MILLIGRAM/SQ. METER, UNK
     Route: 065
  64. CISPLATIN [Concomitant]
     Active Substance: CISPLATIN
     Dosage: 17 MILLIGRAM/SQ. METER, UNK
  65. CISPLATIN [Concomitant]
     Active Substance: CISPLATIN
     Dosage: 20 MILLIGRAM/SQ. METER, UNK
  66. CISPLATIN [Concomitant]
     Active Substance: CISPLATIN
     Dosage: 20 MILLIGRAM/SQ. METER, UNK
     Route: 065
  67. CISPLATIN [Concomitant]
     Active Substance: CISPLATIN
     Dosage: 20 MILLIGRAM/SQ. METER, UNK
     Route: 065
  68. CISPLATIN [Concomitant]
     Active Substance: CISPLATIN
     Dosage: 20 MILLIGRAM/SQ. METER, UNK
  69. CISPLATIN [Concomitant]
     Active Substance: CISPLATIN
     Dosage: 15 MILLIGRAM/SQ. METER, UNK
     Route: 065
  70. CISPLATIN [Concomitant]
     Active Substance: CISPLATIN
     Dosage: 15 MILLIGRAM/SQ. METER, UNK
  71. CISPLATIN [Concomitant]
     Active Substance: CISPLATIN
     Dosage: 15 MILLIGRAM/SQ. METER, UNK
     Route: 065
  72. CISPLATIN [Concomitant]
     Active Substance: CISPLATIN
     Dosage: 15 MILLIGRAM/SQ. METER, UNK

REACTIONS (1)
  - Gallbladder enlargement [Recovered/Resolved]
